FAERS Safety Report 6331803-4 (Version None)
Quarter: 2009Q3

REPORT INFORMATION
  Report Type: 
  Country: None (occurrence: None)
  Receive Date: 20090826
  Receipt Date: 20090810
  Transmission Date: 20100115
  Serious: Yes (Other)
  Sender: FDA-Public Use
  Company Number: DSA_40600_2009

PATIENT
  Age: 48 Year
  Sex: Female

DRUGS (1)
  1. DILTIAZEM [Suspect]
     Indication: DRUG USE FOR UNKNOWN INDICATION
     Dosage: 180 MG QD ORAL
     Route: 048

REACTIONS (1)
  - ERYTHEMA MULTIFORME [None]
